FAERS Safety Report 8497657-5 (Version None)
Quarter: 2012Q3

REPORT INFORMATION
  Report Type: 
  Country: None (occurrence: None)
  Receive Date: 20120709
  Receipt Date: 20120614
  Transmission Date: 20120928
  Serious: No
  Sender: FDA-Public Use
  Company Number: US-AMGEN-USASP2012037495

PATIENT
  Sex: Female

DRUGS (9)
  1. METHOTREXATE [Concomitant]
     Dosage: 2.5 MG, UNK
  2. FOLIC ACID [Concomitant]
     Dosage: UNK
  3. LOVAZA [Concomitant]
     Dosage: 1 G, UNK
  4. METHYLPREDNISOLONE [Concomitant]
     Dosage: 4 MG, UNK
  5. SYNTHROID [Concomitant]
     Dosage: 25 MUG, UNK
  6. BIOTIN [Concomitant]
     Dosage: 5000 UNK, UNK
  7. ENBREL [Suspect]
     Indication: PRODUCT USED FOR UNKNOWN INDICATION
     Dosage: 50 MG/ML, QWK
     Route: 058
  8. CALTRATE                           /00751519/ [Concomitant]
     Dosage: 600 UNK, UNK
  9. PRILOSEC [Concomitant]
     Dosage: 10 MG, UNK

REACTIONS (6)
  - INJECTION SITE HAEMORRHAGE [None]
  - INJECTION SITE SWELLING [None]
  - INJECTION SITE HAEMATOMA [None]
  - INJECTION SITE PRURITUS [None]
  - INJECTION SITE PAIN [None]
  - INJECTION SITE ERYTHEMA [None]
